FAERS Safety Report 16443055 (Version 2)
Quarter: 2019Q3

REPORT INFORMATION
  Report Type: Spontaneous
  Country: JP (occurrence: JP)
  Receive Date: 20190617
  Receipt Date: 20190713
  Transmission Date: 20191004
  Serious: Yes (Death, Other)
  Sender: FDA-Public Use
  Company Number: JP-AMGEN-JPNSP2019096225

PATIENT
  Age: 81 Year
  Sex: Female

DRUGS (1)
  1. EVENITY [Suspect]
     Active Substance: ROMOSOZUMAB-AQQG
     Indication: OSTEOPOROSIS
     Dosage: UNK
     Route: 058
     Dates: start: 20190411, end: 20190516

REACTIONS (1)
  - Death [Fatal]

NARRATIVE: CASE EVENT DATE: 20190530
